FAERS Safety Report 4732212-1 (Version None)
Quarter: 2005Q3

REPORT INFORMATION
  Report Type: 
  Country: None (occurrence: None)
  Receive Date: 20050725
  Receipt Date: 20040720
  Transmission Date: 20060218
  Serious: Yes (Death)
  Sender: FDA-Public Use
  Company Number: USA-2004-0016069

PATIENT
  Age: 38 Year
  Sex: Male
  Weight: 84.4 kg

DRUGS (2)
  1. MORPHINE SULFATE [Suspect]
  2. ETHANOL (ETHANOL) [Suspect]

REACTIONS (1)
  - ACCIDENTAL OVERDOSE [None]
